FAERS Safety Report 12732789 (Version 1)
Quarter: 2016Q3

REPORT INFORMATION
  Report Type: Spontaneous
  Country: US (occurrence: US)
  Receive Date: 20160911
  Receipt Date: 20160911
  Transmission Date: 20161109
  Serious: Yes (Life-Threatening, Hospitalization)
  Sender: FDA-Public Use
  Company Number: None

PATIENT
  Age: 26 Year
  Sex: Female
  Weight: 86.85 kg

DRUGS (3)
  1. LISINOPRIL. [Concomitant]
     Active Substance: LISINOPRIL
  2. NUVARING [Suspect]
     Active Substance: ETHINYL ESTRADIOL\ETONOGESTREL
     Indication: CONTRACEPTION
     Dosage: OTHER STRENGTH:;OTHER DOSE:;OTHER FREQUENCY:OTHER;OTHER ROUTE: VAGINAL
     Route: 067
     Dates: start: 20121101, end: 20160907
  3. XARELTO [Concomitant]
     Active Substance: RIVAROXABAN

REACTIONS (5)
  - Dyspnoea [None]
  - Chest pain [None]
  - Heart rate increased [None]
  - Musculoskeletal pain [None]
  - Pulmonary embolism [None]

NARRATIVE: CASE EVENT DATE: 20160907
